FAERS Safety Report 5737008-X (Version None)
Quarter: 2008Q2

REPORT INFORMATION
  Report Type: 
  Country: None (occurrence: None)
  Receive Date: 20080514
  Receipt Date: 20080507
  Transmission Date: 20081010
  Serious: No
  Sender: FDA-Public Use
  Company Number: AT-PFIZER INC-2008036880

PATIENT
  Age: 55 Year

DRUGS (1)
  1. METHYLPREDNISOLONE 16MG TAB [Suspect]
     Indication: SYSTEMIC LUPUS ERYTHEMATOSUS

REACTIONS (7)
  - ABSCESS [None]
  - BIOPSY SKIN ABNORMAL [None]
  - MULTI-ORGAN FAILURE [None]
  - NO ADVERSE EVENT [None]
  - SEPSIS [None]
  - TREATMENT FAILURE [None]
  - TUBERCULOSIS [None]
